FAERS Safety Report 5532856-3 (Version None)
Quarter: 2007Q4

REPORT INFORMATION
  Report Type: 
  Country: None (occurrence: None)
  Receive Date: 20071204
  Receipt Date: 20071123
  Transmission Date: 20080405
  Serious: No
  Sender: FDA-Public Use
  Company Number: FR-BAXTER-2007BH009458

PATIENT
  Age: 49 Year
  Sex: Male

DRUGS (2)
  1. ADVATE [Suspect]
     Indication: HAEMATOMA
     Dosage: DOSE UNIT:UNKNOWN
     Route: 042
     Dates: start: 20051123
  2. OPIAT [Concomitant]

REACTIONS (1)
  - BILIARY COLIC [None]
